FAERS Safety Report 13650546 (Version 2)
Quarter: 2017Q3

REPORT INFORMATION
  Report Type: Report from Study
  Country: None (occurrence: US)
  Receive Date: 20170614
  Receipt Date: 20170913
  Transmission Date: 20171127
  Serious: Yes (Disabling, Other)
  Sender: FDA-Public Use
  Company Number: US-ABBVIE-17K-163-2003936-00

PATIENT
  Sex: Male
  Weight: 60.38 kg

DRUGS (4)
  1. HUMIRA [Suspect]
     Active Substance: ADALIMUMAB
     Route: 058
     Dates: start: 201703, end: 201705
  2. MOTRIN [Suspect]
     Active Substance: IBUPROFEN
     Indication: POSTOPERATIVE CARE
     Route: 048
     Dates: end: 2017
  3. HUMIRA [Suspect]
     Active Substance: ADALIMUMAB
     Indication: COLITIS ULCERATIVE
     Route: 058
     Dates: start: 201702, end: 201703
  4. HUMIRA [Suspect]
     Active Substance: ADALIMUMAB
     Route: 058
     Dates: start: 201707, end: 201708

REACTIONS (10)
  - Accident at work [Recovering/Resolving]
  - Folliculitis [Recovered/Resolved]
  - Vomiting [Recovered/Resolved]
  - Wound decomposition [Unknown]
  - Limb crushing injury [Recovered/Resolved]
  - Hand fracture [Recovering/Resolving]
  - Drug intolerance [Unknown]
  - Lymphadenopathy [Recovered/Resolved]
  - Tooth impacted [Recovering/Resolving]
  - Wound dehiscence [Recovered/Resolved]

NARRATIVE: CASE EVENT DATE: 2017
